FAERS Safety Report 9118729 (Version 1)
Quarter: 2013Q1

REPORT INFORMATION
  Report Type: Spontaneous
  Country: US (occurrence: None)
  Receive Date: 20130221
  Receipt Date: 20130221
  Transmission Date: 20140127
  Serious: No
  Sender: FDA-Public Use
  Company Number: None

PATIENT
  Sex: Female
  Weight: 84.82 kg

DRUGS (6)
  1. CYMBALTA [Suspect]
     Indication: PAIN
     Route: 048
     Dates: start: 2012
  2. ATENOLOL [Concomitant]
  3. HYDROXCHLOROQUINE [Concomitant]
  4. HCT2 [Concomitant]
  5. ASPIRIN [Concomitant]
  6. AMITRIPTYLINE [Concomitant]

REACTIONS (2)
  - Eye movement disorder [None]
  - Tremor [None]
